FAERS Safety Report 7563999-0 (Version None)
Quarter: 2011Q2

REPORT INFORMATION
  Report Type: 
  Country: None (occurrence: None)
  Receive Date: 20110622
  Receipt Date: 20110620
  Transmission Date: 20111010
  Serious: Yes (Other)
  Sender: FDA-Public Use
  Company Number: BR-PFIZER INC-2011130092

PATIENT
  Age: 38 Year
  Sex: Male
  Weight: 91 kg

DRUGS (4)
  1. NEVIRAPINE [Concomitant]
     Indication: HIV CARRIER
     Dosage: UNK
  2. LIPITOR [Suspect]
     Indication: BLOOD CHOLESTEROL INCREASED
     Dosage: UNK
     Route: 048
     Dates: start: 20100601, end: 20110610
  3. LAMIVUDINE [Concomitant]
     Indication: HIV CARRIER
     Dosage: UNK
  4. ZIDOVUDINE [Concomitant]
     Indication: HIV CARRIER
     Dosage: UNK

REACTIONS (1)
  - BLOOD PRESSURE INCREASED [None]
